FAERS Safety Report 17817765 (Version 2)
Quarter: 2020Q3

REPORT INFORMATION
  Report Type: Spontaneous
  Country: DK (occurrence: DK)
  Receive Date: 20200522
  Receipt Date: 20200706
  Transmission Date: 20201102
  Serious: Yes (Life-Threatening, Hospitalization, Other)
  Sender: FDA-Public Use
  Company Number: DK-BAYER-2020-069217

PATIENT
  Age: 34 Year
  Sex: Female

DRUGS (1)
  1. MIRENA [Suspect]
     Active Substance: LEVONORGESTREL
     Indication: CONTRACEPTION
     Dosage: DOSIS: IKKE ANGIVETSTYRKE: 20MIKROGRAM/24T
     Route: 015
     Dates: start: 201604, end: 20200421

REACTIONS (8)
  - Ectopic pregnancy with contraceptive device [Recovered/Resolved]
  - Intra-abdominal haemorrhage [Unknown]
  - Vaginal haemorrhage [Unknown]
  - Medical device pain [None]
  - Ruptured ectopic pregnancy [Recovered/Resolved]
  - Abdominal pain upper [Unknown]
  - Drug ineffective [Unknown]
  - Salpingectomy [Recovered/Resolved]

NARRATIVE: CASE EVENT DATE: 2020
